FAERS Safety Report 4885022-9 (Version None)
Quarter: 2006Q1

REPORT INFORMATION
  Report Type: 
  Country: None (occurrence: None)
  Receive Date: 20060119
  Receipt Date: 20051005
  Transmission Date: 20060701
  Serious: Yes (Hospitalization, Disabling)
  Sender: FDA-Public Use
  Company Number: US-MERCK-0510USA04651

PATIENT
  Age: 66 Year
  Sex: Female
  Weight: 89 kg

DRUGS (6)
  1. VIOXX [Suspect]
     Indication: ARTHRITIS
     Route: 048
     Dates: start: 20000201, end: 20030701
  2. LISINOPRIL [Concomitant]
     Route: 065
  3. BENICAR [Concomitant]
     Route: 065
  4. NEURONTIN [Concomitant]
     Route: 065
  5. LIPITOR [Concomitant]
     Route: 065
  6. LASIX [Concomitant]
     Route: 065

REACTIONS (12)
  - ARTERIAL STENOSIS LIMB [None]
  - ARTHRALGIA [None]
  - CARDIAC FAILURE CONGESTIVE [None]
  - CARDIAC VALVE DISEASE [None]
  - CARDIOVASCULAR DISORDER [None]
  - DEEP VEIN THROMBOSIS [None]
  - ISCHAEMIC NEUROPATHY [None]
  - MENISCUS LESION [None]
  - NEURALGIA [None]
  - PERIPHERAL ARTERY ANEURYSM [None]
  - ULCER HAEMORRHAGE [None]
  - UTERINE DISORDER [None]
